FAERS Safety Report 21286985 (Version 2)
Quarter: 2022Q4

REPORT INFORMATION
  Report Type: Spontaneous
  Country: US (occurrence: US)
  Receive Date: 20220902
  Receipt Date: 20221021
  Transmission Date: 20230113
  Serious: No
  Sender: FDA-Public Use
  Company Number: US-BRISTOL-MYERS SQUIBB COMPANY-2022-099290

PATIENT
  Age: 65 Year
  Sex: Female

DRUGS (1)
  1. REVLIMID [Suspect]
     Active Substance: LENALIDOMIDE
     Indication: Plasma cell myeloma
     Dosage: FREQUENCY :  TAKE 1 CAPSULE (10MG TOTAL) BY MOUTH IN THE MORNING FOR 28 DAYS
     Route: 048
     Dates: start: 20210112

REACTIONS (1)
  - Tooth disorder [Recovered/Resolved]
